FAERS Safety Report 4462400-3 (Version None)
Quarter: 2004Q3

REPORT INFORMATION
  Report Type: 
  Country: None (occurrence: None)
  Receive Date: 20040924
  Receipt Date: 20040910
  Transmission Date: 20050211
  Serious: No
  Sender: FDA-Public Use
  Company Number: A01200404349

PATIENT
  Sex: Male

DRUGS (1)
  1. XATRAL (ASULFUZOSIN) TABLET FR-10 MG [Suspect]
     Route: 048
     Dates: start: 20040301, end: 20040301

REACTIONS (2)
  - ATRIAL FIBRILLATION [None]
  - SYNCOPE [None]
